FAERS Safety Report 10899717 (Version 2)
Quarter: 2015Q2

REPORT INFORMATION
  Report Type: Report from Study
  Country: US (occurrence: US)
  Receive Date: 20150309
  Receipt Date: 20150504
  Transmission Date: 20150821
  Serious: Yes (Life-Threatening, Disabling, Other)
  Sender: FDA-Public Use
  Company Number: US-INTERMUNE, INC.-201503IM011295

PATIENT
  Age: 72 Year
  Sex: Male
  Weight: 92.5 kg

DRUGS (3)
  1. PIRFENIDONE [Suspect]
     Active Substance: PIRFENIDONE
     Dosage: 2403 MG
     Route: 048
     Dates: start: 20150123, end: 20150226
  2. PIRFENIDONE [Suspect]
     Active Substance: PIRFENIDONE
     Indication: IDIOPATHIC PULMONARY FIBROSIS
     Dosage: 534 MG
     Route: 048
     Dates: start: 20140917, end: 20150109
  3. OMEPRAZOLE. [Concomitant]
     Active Substance: OMEPRAZOLE
     Indication: GASTROOESOPHAGEAL REFLUX DISEASE
     Dates: start: 201410

REACTIONS (1)
  - Idiopathic pulmonary fibrosis [Not Recovered/Not Resolved]

NARRATIVE: CASE EVENT DATE: 20141203
